FAERS Safety Report 7031521-3 (Version None)
Quarter: 2010Q4

REPORT INFORMATION
  Report Type: 
  Country: None (occurrence: None)
  Receive Date: 20101006
  Receipt Date: 20101004
  Transmission Date: 20110411
  Serious: Yes (Other)
  Sender: FDA-Public Use
  Company Number: DE-MERCK-1010DEU00015

PATIENT
  Age: 81 Year
  Sex: Male

DRUGS (6)
  1. COZAAR [Suspect]
     Indication: HYPERTENSION
     Route: 048
  2. AMLODIPINE [Concomitant]
     Route: 065
  3. TRIAMTERENE [Concomitant]
     Route: 065
  4. METOHEXAL [Concomitant]
     Route: 065
  5. TALCID [Concomitant]
     Route: 065
  6. OMEPRAZOLE [Concomitant]
     Route: 065

REACTIONS (2)
  - APHONIA [None]
  - DYSPHONIA [None]
